FAERS Safety Report 15613351 (Version 2)
Quarter: 2018Q4

REPORT INFORMATION
  Report Type: Spontaneous
  Country: US (occurrence: US)
  Receive Date: 20181113
  Receipt Date: 20181205
  Transmission Date: 20190205
  Serious: No
  Sender: FDA-Public Use
  Company Number: US-MATRIXX INITIATIVES, INC.-2058791

PATIENT
  Age: 38 Year
  Sex: Female

DRUGS (1)
  1. ZICAM COLD REMEDY RAPIDMELTS [Suspect]
     Active Substance: HOMEOPATHICS\ZINC ACETATE ANHYDROUS\ZINC GLUCONATE
     Route: 048
     Dates: start: 20181110, end: 20181110

REACTIONS (4)
  - Hypoaesthesia oral [None]
  - Ageusia [None]
  - Anosmia [None]
  - Dysphagia [None]
